FAERS Safety Report 23936624 (Version 1)
Quarter: 2024Q2

REPORT INFORMATION
  Report Type: Spontaneous
  Country: US (occurrence: None)
  Receive Date: 20240603
  Receipt Date: 20240603
  Transmission Date: 20240716
  Serious: Yes (Disabling)
  Sender: FDA-Public Use
  Company Number: None

PATIENT
  Age: 50 Year
  Sex: Female
  Weight: 92.25 kg

DRUGS (1)
  1. SEMAGLUTIDE [Suspect]
     Active Substance: SEMAGLUTIDE
     Indication: Weight decreased
     Dosage: OTHER ROUTE : INJECTED INTO STOMACH?
     Route: 050
     Dates: start: 20230109, end: 20230110

REACTIONS (5)
  - Drug ineffective [None]
  - Arthralgia [None]
  - Fatigue [None]
  - Joint swelling [None]
  - Vision blurred [None]

NARRATIVE: CASE EVENT DATE: 20230109
